FAERS Safety Report 7559253-3 (Version None)
Quarter: 2011Q2

REPORT INFORMATION
  Report Type: 
  Country: None (occurrence: None)
  Receive Date: 20110621
  Receipt Date: 20110613
  Transmission Date: 20111010
  Serious: Yes (Hospitalization, Other)
  Sender: FDA-Public Use
  Company Number: US-US-EMD SERONO, INC.-7063984

PATIENT
  Sex: Male

DRUGS (1)
  1. REBIF [Suspect]
     Indication: PRODUCT USED FOR UNKNOWN INDICATION
     Route: 058
     Dates: start: 20110124

REACTIONS (6)
  - COGNITIVE DISORDER [None]
  - PYREXIA [None]
  - INTRACRANIAL ANEURYSM [None]
  - CONVULSION [None]
  - BONE PAIN [None]
  - HEADACHE [None]
